FAERS Safety Report 13537716 (Version 1)
Quarter: 2017Q2

REPORT INFORMATION
  Report Type: Spontaneous
  Country: US (occurrence: US)
  Receive Date: 20170511
  Receipt Date: 20170511
  Transmission Date: 20170830
  Serious: Yes (Hospitalization)
  Sender: FDA-Public Use
  Company Number: US-ACTELION-A-US2017-153525

PATIENT
  Age: 61 Year
  Sex: Female

DRUGS (10)
  1. DIGOXIN. [Concomitant]
     Active Substance: DIGOXIN
  2. EFFEXOR [Concomitant]
     Active Substance: VENLAFAXINE HYDROCHLORIDE
  3. BACLOFEN. [Concomitant]
     Active Substance: BACLOFEN
  4. MIRALAX [Concomitant]
     Active Substance: POLYETHYLENE GLYCOL 3350
  5. COUMADIN [Concomitant]
     Active Substance: WARFARIN SODIUM
  6. ADCIRCA [Concomitant]
     Active Substance: TADALAFIL
  7. IPRATROPIUM [Concomitant]
     Active Substance: IPRATROPIUM
  8. OPSUMIT [Suspect]
     Active Substance: MACITENTAN
     Indication: PRODUCT USED FOR UNKNOWN INDICATION
     Dosage: 10 MG, QD
     Route: 048
  9. BUSPIRONE [Concomitant]
     Active Substance: BUSPIRONE HYDROCHLORIDE
  10. DOXEPIN [Concomitant]
     Active Substance: DOXEPIN

REACTIONS (2)
  - Fall [Unknown]
  - Hip fracture [Unknown]
